FAERS Safety Report 5450976-9 (Version None)
Quarter: 2007Q3

REPORT INFORMATION
  Report Type: 
  Country: None (occurrence: None)
  Receive Date: 20070911
  Receipt Date: 20070911
  Transmission Date: 20080115
  Serious: Yes (Death)
  Sender: FDA-Public Use
  Company Number: None

PATIENT
  Age: 18 Year
  Sex: Male
  Weight: 85 kg

DRUGS (1)
  1. METHADONE HCL [Suspect]
     Dates: start: 20070609, end: 20070609

REACTIONS (1)
  - NO ADVERSE REACTION [None]
